FAERS Safety Report 10572566 (Version 1)
Quarter: 2014Q4

REPORT INFORMATION
  Report Type: Report from Study
  Country: GB (occurrence: GB)
  Receive Date: 20141110
  Receipt Date: 20141110
  Transmission Date: 20150529
  Serious: Yes (Other)
  Sender: FDA-Public Use
  Company Number: GB-AMGEN-GBRNI2014086030

PATIENT
  Age: 69 Year
  Sex: Female
  Weight: 113 kg

DRUGS (2)
  1. ETANERCEPT [Suspect]
     Active Substance: ETANERCEPT
     Indication: PRODUCT USED FOR UNKNOWN INDICATION
     Dosage: 25 MG, 2 TIMES/WK
     Route: 065
     Dates: start: 20031007
  2. METHOTREXATE [Concomitant]
     Active Substance: METHOTREXATE
     Dosage: UNK

REACTIONS (1)
  - Infective exacerbation of bronchiectasis [Recovered/Resolved]

NARRATIVE: CASE EVENT DATE: 20130415
